FAERS Safety Report 10239097 (Version 4)
Quarter: 2014Q3

REPORT INFORMATION
  Report Type: Spontaneous
  Country: JP (occurrence: JP)
  Receive Date: 20140616
  Receipt Date: 20140721
  Transmission Date: 20150326
  Serious: Yes (Other)
  Sender: FDA-Public Use
  Company Number: JP-PFIZER INC-2014158889

PATIENT
  Age: 80 Year
  Sex: Female

DRUGS (1)
  1. SUTENT [Suspect]
     Active Substance: SUNITINIB MALATE
     Indication: METASTATIC RENAL CELL CARCINOMA
     Dosage: 25 MG/DAY, CYCLIC
     Route: 048
     Dates: start: 20111026

REACTIONS (6)
  - Dysphagia [Not Recovered/Not Resolved]
  - Quadriplegia [Not Recovered/Not Resolved]
  - General physical health deterioration [Unknown]
  - Leukopenia [Recovered/Resolved]
  - Metastatic renal cell carcinoma [Unknown]
  - Disease progression [Unknown]

NARRATIVE: CASE EVENT DATE: 201404
